FAERS Safety Report 8136821-1 (Version None)
Quarter: 2012Q1

REPORT INFORMATION
  Report Type: 
  Country: None (occurrence: None)
  Receive Date: 20120214
  Receipt Date: 20120207
  Transmission Date: 20120608
  Serious: Yes (Other)
  Sender: FDA-Public Use
  Company Number: US-CELGENEUS-163-21880-12020905

PATIENT
  Sex: Male
  Weight: 72 kg

DRUGS (3)
  1. REVLIMID [Suspect]
     Indication: MYELODYSPLASTIC SYNDROME
     Dosage: 10 MILLIGRAM
     Route: 048
     Dates: start: 20061009
  2. EXJADE [Concomitant]
     Dosage: 1500 MILLIGRAM
     Route: 048
     Dates: start: 20070309
  3. REVLIMID [Suspect]
     Dosage: 5 MILLIGRAM
     Route: 048
     Dates: start: 20100701

REACTIONS (3)
  - DYSPEPSIA [None]
  - HERNIA [None]
  - PLATELET COUNT DECREASED [None]
